FAERS Safety Report 7124862-2 (Version None)
Quarter: 2010Q4

REPORT INFORMATION
  Report Type: 
  Country: None (occurrence: None)
  Receive Date: 20101123
  Receipt Date: 20101123
  Transmission Date: 20110411
  Serious: Yes (Hospitalization)
  Sender: FDA-Public Use
  Company Number: None

PATIENT
  Age: 60 Year
  Sex: Female
  Weight: 119 kg

DRUGS (10)
  1. LIPOSOMAL DOXORUBICIN ORTHOBIOTECH [Suspect]
     Indication: BREAST CANCER METASTATIC
     Dosage: 45MG/M2 Q 28 DAYS IV
     Route: 042
     Dates: start: 20101119, end: 20101119
  2. ACETAMINOPHEN AND HYDROCODONE BITARTRATE [Concomitant]
  3. OXYCONTIN [Concomitant]
  4. ZOLEDRONIC ACID [Concomitant]
  5. XANAX [Concomitant]
  6. LEVOTHYROXINE SODIUM [Concomitant]
  7. LISINOPRIL-HYDROCHLOROTHIAZIDE -LISINOPRIL-HCTZ [Concomitant]
  8. AMBIEN [Concomitant]
  9. TRICOR [Concomitant]
  10. SERTRALINE HYDROCHLORIDE [Concomitant]

REACTIONS (3)
  - DIZZINESS [None]
  - HYPOTENSION [None]
  - INFUSION RELATED REACTION [None]
